FAERS Safety Report 4997876-6 (Version None)
Quarter: 2006Q2

REPORT INFORMATION
  Report Type: 
  Country: None (occurrence: None)
  Receive Date: 20060508
  Receipt Date: 20060426
  Transmission Date: 20061013
  Serious: Yes (Hospitalization, Other)
  Sender: FDA-Public Use
  Company Number: 2005133935

PATIENT
  Age: 52 Year
  Sex: Male
  Weight: 79.3795 kg

DRUGS (1)
  1. BEXTRA [Suspect]
     Indication: ARTHRALGIA
     Dosage: (10 MG)
     Dates: start: 20020702, end: 20031001

REACTIONS (5)
  - AMNESIA [None]
  - BALANCE DISORDER [None]
  - CEREBROVASCULAR ACCIDENT [None]
  - ILL-DEFINED DISORDER [None]
  - THALAMIC INFARCTION [None]
